FAERS Safety Report 9086294 (Version 1)
Quarter: 2013Q1

REPORT INFORMATION
  Report Type: Spontaneous
  Country: US (occurrence: US)
  Receive Date: 20130131
  Receipt Date: 20130131
  Transmission Date: 20140127
  Serious: Yes (Hospitalization)
  Sender: FDA-Public Use
  Company Number: US-ALEXION-A201202489

PATIENT
  Age: 69 Year
  Sex: Male

DRUGS (1)
  1. SOLIRIS 300MG [Suspect]
     Indication: PAROXYSMAL NOCTURNAL HAEMOGLOBINURIA
     Dosage: UNK
     Route: 042
     Dates: end: 20121217

REACTIONS (7)
  - Prostatectomy [Unknown]
  - Urinary retention [Recovered/Resolved]
  - Sepsis [Recovered/Resolved]
  - Weight decreased [Unknown]
  - Prostatic specific antigen increased [Unknown]
  - Decreased appetite [Unknown]
  - Haemoglobin decreased [Unknown]
